FAERS Safety Report 21782999 (Version 1)
Quarter: 2022Q4

REPORT INFORMATION
  Report Type: Spontaneous
  Country: US (occurrence: None)
  Receive Date: 20221225
  Receipt Date: 20221225
  Transmission Date: 20230112
  Serious: Yes (Disabling, Other)
  Sender: FDA-Public Use
  Company Number: None

PATIENT
  Age: 54 Year
  Sex: Male
  Weight: 72 kg

DRUGS (10)
  1. ACETAMINOPHEN\HYDROCODONE [Suspect]
     Active Substance: ACETAMINOPHEN\HYDROCODONE
     Indication: Pain
     Dosage: OTHER QUANTITY : 90 TABLET(S);?FREQUENCY : EVERY 4 HOURS;?
     Route: 048
     Dates: start: 20130811, end: 20170415
  2. ACETAMINOPHEN\HYDROCODONE BITARTRATE [Concomitant]
     Active Substance: ACETAMINOPHEN\HYDROCODONE BITARTRATE
  3. LIDOCAINE PATCH [Concomitant]
     Active Substance: LIDOCAINE
  4. PRAZOSIN [Concomitant]
     Active Substance: PRAZOSIN
  5. VITAMIN D [Concomitant]
     Active Substance: VITAMIN D NOS
  6. FAMOTIDINE [Concomitant]
     Active Substance: FAMOTIDINE
  7. amlodapine [Concomitant]
  8. BENAZEPRIL [Concomitant]
     Active Substance: BENAZEPRIL HYDROCHLORIDE
  9. generic acetaminophen [Concomitant]
  10. generic nsaid [Concomitant]

REACTIONS (8)
  - Product substitution issue [None]
  - Therapeutic response decreased [None]
  - Pain [None]
  - Suspected product quality issue [None]
  - Inadequate analgesia [None]
  - Therapeutic response shortened [None]
  - Loss of personal independence in daily activities [None]
  - Walking aid user [None]

NARRATIVE: CASE EVENT DATE: 20221109
